FAERS Safety Report 7833586-5 (Version None)
Quarter: 2011Q4

REPORT INFORMATION
  Report Type: 
  Country: None (occurrence: None)
  Receive Date: 20111024
  Receipt Date: 20111021
  Transmission Date: 20120403
  Serious: Yes (Death)
  Sender: FDA-Public Use
  Company Number: JP-B.I. PHARMACEUTICALS,INC./RIDGEFIELD-2011-BP-24650NB

PATIENT
  Age: 77 Year
  Sex: Male

DRUGS (4)
  1. URSO 250 [Concomitant]
     Route: 048
     Dates: start: 20100203
  2. PRADAXA [Suspect]
     Dosage: 300 MG
     Route: 048
     Dates: start: 20110425
  3. RABEPRAZOLE SODIUM [Concomitant]
     Route: 048
     Dates: start: 20110929
  4. DIOVAN [Concomitant]
     Route: 048
     Dates: start: 20110803

REACTIONS (5)
  - ANAEMIA [None]
  - SWELLING FACE [None]
  - ROAD TRAFFIC ACCIDENT [None]
  - DEATH [None]
  - SENSATION OF FOREIGN BODY [None]
